FAERS Safety Report 21951484 (Version 3)
Quarter: 2023Q2

REPORT INFORMATION
  Report Type: Report from Study
  Country: US (occurrence: US)
  Receive Date: 20230203
  Receipt Date: 20230508
  Transmission Date: 20230721
  Serious: Yes (Other)
  Sender: FDA-Public Use
  Company Number: US-SA-SAC20230202000608

PATIENT
  Age: 35 Year
  Sex: Female

DRUGS (12)
  1. BELUMOSUDIL MESYLATE [Suspect]
     Active Substance: BELUMOSUDIL MESYLATE
     Indication: Graft versus host disease
     Dosage: 200 MG, TOTAL
     Route: 048
     Dates: start: 202210
  2. BELUMOSUDIL MESYLATE [Suspect]
     Active Substance: BELUMOSUDIL MESYLATE
     Dosage: 200 MG, QM
     Route: 048
     Dates: start: 20230116
  3. ACYCLOVIR [Concomitant]
     Active Substance: ACYCLOVIR
  4. PREMARIN [Concomitant]
     Active Substance: ESTROGENS, CONJUGATED
  5. VITAMIN D NOS [Concomitant]
     Active Substance: VITAMIN D NOS
     Dosage: UNK
  6. JAKAFI [Concomitant]
     Active Substance: RUXOLITINIB
     Dosage: 10 MG, BID
  7. TOBRAMYCIN AND DEXAMETHASONE [Concomitant]
     Active Substance: DEXAMETHASONE\TOBRAMYCIN
  8. LOESTRIN NOS [Concomitant]
     Active Substance: ETHINYL ESTRADIOL\NORETHINDRONE ACETATE
     Dosage: UNK
  9. CYCLOSPORINE [Concomitant]
     Active Substance: CYCLOSPORINE
     Route: 047
  10. ERYTHROMYCIN [Concomitant]
     Active Substance: ERYTHROMYCIN
  11. DOCUSATE SODIUM [Concomitant]
     Active Substance: DOCUSATE SODIUM
     Dosage: UNK
  12. FISH OIL [Concomitant]
     Active Substance: FISH OIL

REACTIONS (12)
  - Graft versus host disease [Not Recovered/Not Resolved]
  - Graft versus host disease in skin [Recovering/Resolving]
  - Condition aggravated [Not Recovered/Not Resolved]
  - Fatigue [Not Recovered/Not Resolved]
  - Skin lesion [Unknown]
  - Muscle tightness [Recovering/Resolving]
  - Vision blurred [Recovering/Resolving]
  - Lacrimal disorder [Recovering/Resolving]
  - Rash [Recovering/Resolving]
  - Cough [Unknown]
  - Arthralgia [Recovering/Resolving]
  - Viral infection [Unknown]
